FAERS Safety Report 8588159-6 (Version None)
Quarter: 2012Q3

REPORT INFORMATION
  Report Type: 
  Country: None (occurrence: None)
  Receive Date: 20120731
  Receipt Date: 20120717
  Transmission Date: 20120928
  Serious: Yes (Hospitalization)
  Sender: FDA-Public Use
  Company Number: UTC-021135

PATIENT
  Age: 63 Year
  Sex: Male
  Weight: 69.1 kg

DRUGS (4)
  1. TRACLEER [Concomitant]
  2. COUMADIN [Concomitant]
  3. REVATIO [Concomitant]
  4. TYVASO [Suspect]
     Indication: HYPERTENSION
     Dosage: 18-54 MCG (4 IN 1 D), INHALATION
     Route: 055
     Dates: start: 20110713

REACTIONS (2)
  - HAEMORRHAGE [None]
  - RED BLOOD CELL COUNT DECREASED [None]
